FAERS Safety Report 10070960 (Version 1)
Quarter: 2014Q2

REPORT INFORMATION
  Report Type: Spontaneous
  Country: US (occurrence: US)
  Receive Date: 20140410
  Receipt Date: 20140410
  Transmission Date: 20141212
  Serious: Yes (Other)
  Sender: FDA-Public Use
  Company Number: US-GLAXOSMITHKLINE-A1068087A

PATIENT
  Age: 60 Year
  Sex: Female

DRUGS (2)
  1. ADVAIR [Suspect]
     Indication: ASTHMA
     Dosage: 1PUFF TWICE PER DAY
     Route: 055
     Dates: end: 201309
  2. NO CONCURRENT MEDICATION [Concomitant]

REACTIONS (2)
  - Oesophageal ulcer [Not Recovered/Not Resolved]
  - Dysphagia [Not Recovered/Not Resolved]
